FAERS Safety Report 21526289 (Version 2)
Quarter: 2022Q4

REPORT INFORMATION
  Report Type: Spontaneous
  Country: FR (occurrence: FR)
  Receive Date: 20221031
  Receipt Date: 20221123
  Transmission Date: 20230113
  Serious: Yes (Other)
  Sender: FDA-Public Use
  Company Number: FR-CELLTRION INC.-2022FR017899

PATIENT

DRUGS (2)
  1. RITUXIMAB [Interacting]
     Active Substance: RITUXIMAB
     Indication: Multiple sclerosis
     Dosage: 4 CYCLES
     Route: 065
  2. PFIZER-BIONTECH COVID-19 VACCINE [Interacting]
     Active Substance: TOZINAMERAN
     Indication: COVID-19 immunisation
     Dosage: UNK

REACTIONS (4)
  - COVID-19 [Unknown]
  - Drug interaction [Unknown]
  - Vaccination failure [Unknown]
  - Off label use [Unknown]
